FAERS Safety Report 9465296 (Version 2)
Quarter: 2013Q4

REPORT INFORMATION
  Report Type: Report from Study
  Country: SE (occurrence: SE)
  Receive Date: 20130820
  Receipt Date: 20131003
  Transmission Date: 20140711
  Serious: Yes (Life-Threatening)
  Sender: FDA-Public Use
  Company Number: SE-AMGEN-SWECT2013057940

PATIENT
  Age: 77 Year
  Sex: Female

DRUGS (2)
  1. ETANERCEPT [Suspect]
     Indication: POLYARTHRITIS
     Dosage: 50 MG, WEEKLY
     Route: 058
     Dates: start: 20040101, end: 20111201
  2. HUMIRA [Concomitant]
     Indication: POLYARTHRITIS
     Dosage: 40 MG, AS NECESSARY
     Route: 058
     Dates: start: 20121109, end: 20130704

REACTIONS (1)
  - Breast cancer female [Unknown]
